FAERS Safety Report 15274328 (Version 2)
Quarter: 2018Q3

REPORT INFORMATION
  Report Type: Spontaneous
  Country: US (occurrence: US)
  Receive Date: 20180814
  Receipt Date: 20180814
  Transmission Date: 20181010
  Serious: No
  Sender: FDA-Public Use
  Company Number: US-AUROBINDO-AUR-APU-2018-016184

PATIENT
  Age: 83 Year
  Sex: Female

DRUGS (1)
  1. LEVOFLOXACIN TABLETS 500MG [Suspect]
     Active Substance: LEVOFLOXACIN
     Indication: PNEUMONIA
     Dosage: 01 TABLET EVERY DAY FOR 07 DAYS

REACTIONS (5)
  - Musculoskeletal pain [Recovered/Resolved]
  - Malaise [Unknown]
  - Drug ineffective [Unknown]
  - Cough [Unknown]
  - Tendon disorder [Unknown]
